FAERS Safety Report 24601887 (Version 3)
Quarter: 2025Q4

REPORT INFORMATION
  Report Type: Spontaneous
  Country: GB (occurrence: GB)
  Receive Date: 20241111
  Receipt Date: 20251003
  Transmission Date: 20260118
  Serious: Yes (Other)
  Sender: ACCORD
  Company Number: None

PATIENT
  Age: 81 Year
  Sex: Male

DRUGS (3)
  1. APIXABAN [Suspect]
     Active Substance: APIXABAN
     Indication: Adverse drug reaction
     Dosage: 5MG TWICE DAILY, ONLY TAKES ONE TABLET PER DAY INSTEAD OF THE RECOMMENDED?DOSE OF A.M AND P.M
     Dates: start: 202303
  2. RAMIPRIL [Concomitant]
     Active Substance: RAMIPRIL
  3. BISOPROLOL [Concomitant]
     Active Substance: BISOPROLOL

REACTIONS (2)
  - Back pain [Not Recovered/Not Resolved]
  - Arthralgia [Not Recovered/Not Resolved]

NARRATIVE: CASE EVENT DATE: 20230301
